FAERS Safety Report 7730911-0 (Version None)
Quarter: 2011Q3

REPORT INFORMATION
  Report Type: 
  Country: None (occurrence: None)
  Receive Date: 20110906
  Receipt Date: 20110830
  Transmission Date: 20111222
  Serious: Yes (Death, Other)
  Sender: FDA-Public Use
  Company Number: JP-PFIZER INC-2011122574

PATIENT
  Age: 69 Year
  Sex: Male
  Weight: 58.6 kg

DRUGS (7)
  1. POLARAMINE [Concomitant]
     Indication: PROPHYLAXIS
     Dosage: 8 MG, WEEKLY
     Route: 048
  2. MOTILIUM [Concomitant]
     Dosage: 10 MG, 3X/DAY
     Route: 048
     Dates: end: 20110528
  3. ETODOLAC [Concomitant]
     Dosage: 200 MG, 2X/DAY
     Route: 048
     Dates: end: 20110528
  4. MUCOSTA [Concomitant]
     Indication: PROPHYLAXIS
     Dosage: 100 MG, 2X/DAY
     Route: 048
     Dates: end: 20110528
  5. TEMSIROLIMUS [Suspect]
     Indication: RENAL CELL CARCINOMA
     Dosage: 25 MG, WEEKLY
     Route: 042
     Dates: start: 20110415, end: 20110519
  6. LASIX [Concomitant]
     Dosage: 20 MG, 1X/DAY
     Route: 048
     Dates: end: 20110528
  7. MS CONTIN [Concomitant]
     Indication: RENAL CELL CARCINOMA
     Dosage: 10 MG, 3X/DAY
     Route: 048
     Dates: end: 20110528

REACTIONS (2)
  - SUDDEN DEATH [None]
  - STOMATITIS [None]
